FAERS Safety Report 8334256-X (Version None)
Quarter: 2012Q2

REPORT INFORMATION
  Report Type: 
  Country: None (occurrence: None)
  Receive Date: 20120503
  Receipt Date: 20120427
  Transmission Date: 20120825
  Serious: Yes (Hospitalization)
  Sender: FDA-Public Use
  Company Number: US-GILEAD-2012-0053392

PATIENT
  Sex: Male

DRUGS (2)
  1. LETAIRIS [Suspect]
     Indication: PULMONARY HYPERTENSION
     Dosage: 5 MG, UNK
     Route: 048
     Dates: start: 20110531
  2. LETAIRIS [Suspect]
     Indication: SARCOIDOSIS

REACTIONS (4)
  - CARDIAC FAILURE CONGESTIVE [None]
  - INFLUENZA [None]
  - SEPSIS [None]
  - SYNCOPE [None]
